FAERS Safety Report 24452223 (Version 1)
Quarter: 2024Q4

REPORT INFORMATION
  Report Type: Spontaneous
  Country: US (occurrence: US)
  Receive Date: 20241017
  Receipt Date: 20241017
  Transmission Date: 20250114
  Serious: No
  Sender: SUNOVION
  Company Number: US-SMPA-202401-URV-000118AA

PATIENT
  Sex: Female

DRUGS (3)
  1. GEMTESA [Suspect]
     Active Substance: VIBEGRON
     Dosage: UNK
     Route: 065
     Dates: start: 202401
  2. GEMTESA [Suspect]
     Active Substance: VIBEGRON
     Indication: Nocturia
  3. GEMTESA [Suspect]
     Active Substance: VIBEGRON
     Indication: Urinary incontinence

REACTIONS (1)
  - Nausea [Not Recovered/Not Resolved]

NARRATIVE: CASE EVENT DATE: 20240130
